FAERS Safety Report 4491948-0 (Version None)
Quarter: 2004Q4

REPORT INFORMATION
  Report Type: 
  Country: None (occurrence: None)
  Receive Date: 20041029
  Receipt Date: 20041029
  Transmission Date: 20050328
  Serious: Yes (Other)
  Sender: FDA-Public Use
  Company Number: None

PATIENT
  Age: 68 Year
  Sex: Female
  Weight: 107.0489 kg

DRUGS (10)
  1. PAXIL [Suspect]
     Indication: MAJOR DEPRESSION
     Dosage: 60 MG PO QHS
     Route: 048
     Dates: start: 19960101
  2. SINGULAIR [Concomitant]
  3. NEXIUM [Concomitant]
  4. TRIAM/HCTZ [Concomitant]
  5. COMBIVENT [Concomitant]
  6. VERAPAMIL [Concomitant]
  7. LIPITOR [Concomitant]
  8. ADVAIR [Concomitant]
  9. COZAAR [Concomitant]
  10. BEXTRA [Concomitant]

REACTIONS (2)
  - ABDOMINAL DISCOMFORT [None]
  - PHARMACEUTICAL PRODUCT COMPLAINT [None]
